FAERS Safety Report 6194289-9 (Version None)
Quarter: 2009Q2

REPORT INFORMATION
  Report Type: 
  Country: None (occurrence: None)
  Receive Date: 20090519
  Receipt Date: 20080416
  Transmission Date: 20091009
  Serious: Yes (Other)
  Sender: FDA-Public Use
  Company Number: US-ASTRAZENECA-2006UW24728

PATIENT
  Age: 14784 Day
  Sex: Male
  Weight: 102.8 kg

DRUGS (24)
  1. SEROQUEL [Suspect]
     Dosage: 100-300MG
     Route: 048
     Dates: start: 20020919
  2. ATORVASTATIN [Concomitant]
     Route: 065
  3. SIMETHICONE [Concomitant]
     Dosage: 2 TAB, 2 TIMES A DAY
     Route: 048
  4. RISPERIDONE [Concomitant]
     Dosage: 1-4MG
     Route: 048
  5. NAPROSYN [Concomitant]
     Dosage: 500 MG, BID PRN
     Route: 065
  6. WELLBUTRIN [Concomitant]
     Dosage: 75-300MG
     Route: 048
  7. HYDROXYZINE [Concomitant]
     Indication: AGITATION
     Route: 065
  8. HYDROXYZINE [Concomitant]
     Route: 065
  9. MOTRIN [Concomitant]
     Indication: PAIN
     Dosage: 400 MG, BID PRN, 600 MG TID PRN
     Route: 048
  10. LEXAPRO [Concomitant]
     Dosage: 30-40 MG
     Route: 065
  11. CELEXA [Concomitant]
     Route: 065
  12. VENLAFAXINE HCL [Concomitant]
     Route: 065
  13. VENLAFAXINE HCL [Concomitant]
     Dosage: XR 37.5 MG QPM
     Route: 065
  14. PAROXETINE [Concomitant]
     Dosage: 20-30 MG
     Route: 065
  15. SEPTRA DS [Concomitant]
     Dosage: TWICE DAILY
     Route: 048
  16. ZOLOFT [Concomitant]
     Route: 048
  17. PROMETHAZINE [Concomitant]
     Indication: NAUSEA
     Dosage: 25 MG BEFORE MEALS AS NEEDED
     Route: 065
  18. PROMETHAZINE [Concomitant]
     Indication: VOMITING
     Dosage: 25 MG BEFORE MEALS AS NEEDED
     Route: 065
  19. DOCUSATE SODIUM [Concomitant]
     Dosage: 100-250 MG QD
     Route: 065
  20. ROBAXIN [Concomitant]
     Dosage: 750 MG QHS PRN
     Route: 048
  21. MIRTAZAPINE [Concomitant]
     Dosage: 30-45 MG
     Route: 048
  22. TRAZODONE HCL [Concomitant]
     Indication: INSOMNIA
     Dosage: 50-250 MG QD
     Route: 048
  23. FIBERCON [Concomitant]
     Dosage: 2 TABS TID
     Route: 065
  24. ARIPIPRAZOLE [Concomitant]
     Dosage: 10-15 MG QD
     Route: 048

REACTIONS (19)
  - BACK PAIN [None]
  - BRONCHITIS [None]
  - CONSTIPATION [None]
  - DYSPEPSIA [None]
  - GASTROOESOPHAGEAL REFLUX DISEASE [None]
  - HAEMORRHOIDS [None]
  - HALLUCINATION, AUDITORY [None]
  - NON-CARDIAC CHEST PAIN [None]
  - OEDEMA PERIPHERAL [None]
  - ONYCHOMYCOSIS [None]
  - PARANOIA [None]
  - POLYSUBSTANCE DEPENDENCE [None]
  - PSYCHOTIC DISORDER [None]
  - RENAL FAILURE [None]
  - TINEA PEDIS [None]
  - TOOTHACHE [None]
  - UPPER RESPIRATORY TRACT INFECTION [None]
  - VISION BLURRED [None]
  - WEIGHT INCREASED [None]
